FAERS Safety Report 12734946 (Version 1)
Quarter: 2016Q3

REPORT INFORMATION
  Report Type: Report from Study
  Country: ES (occurrence: ES)
  Receive Date: 20160913
  Receipt Date: 20160913
  Transmission Date: 20161109
  Serious: Yes (Other)
  Sender: FDA-Public Use
  Company Number: ES-BAXTER-2016BAX045956

PATIENT
  Age: 61 Year

DRUGS (24)
  1. RITUXIMAB [Suspect]
     Active Substance: RITUXIMAB
     Indication: CHRONIC LYMPHOCYTIC LEUKAEMIA
     Dosage: TREATMENT VISIT 1
     Route: 065
     Dates: start: 20111207, end: 20111210
  2. RITUXIMAB [Suspect]
     Active Substance: RITUXIMAB
     Dosage: TREATMENT VISIT 3
     Route: 065
     Dates: start: 20120214, end: 20120216
  3. RITUXIMAB [Suspect]
     Active Substance: RITUXIMAB
     Dosage: TREATMENT VISIT 5
     Route: 065
     Dates: start: 20120417, end: 20120419
  4. FLUDARABINE [Suspect]
     Active Substance: FLUDARABINE PHOSPHATE
     Dosage: DOSE REDUCED DUE TO HEMATOLOGIC TOXICITY, TREATMENT VISIT 2
     Route: 065
     Dates: start: 20120110, end: 20120112
  5. FLUDARABINE [Suspect]
     Active Substance: FLUDARABINE PHOSPHATE
     Dosage: TREATMENT VISIT 3
     Route: 065
     Dates: start: 20120214, end: 20120216
  6. FLUDARABINE [Suspect]
     Active Substance: FLUDARABINE PHOSPHATE
     Dosage: TREATMENT VISIT 6
     Route: 065
     Dates: start: 20120529, end: 20120531
  7. MITOXANTRONE [Suspect]
     Active Substance: MITOXANTRONE HYDROCHLORIDE
     Dosage: TREATMENT VISIT 2
     Route: 065
     Dates: start: 20120110, end: 20120112
  8. GENOXAL [Suspect]
     Active Substance: CYCLOPHOSPHAMIDE
     Dosage: TREATMENT VISIT 2
     Route: 065
     Dates: start: 20120110, end: 20120112
  9. FLUDARABINE [Suspect]
     Active Substance: FLUDARABINE PHOSPHATE
     Dosage: TREATMENT VISIT 4
     Route: 065
     Dates: start: 20120320, end: 20120322
  10. MITOXANTRONE [Suspect]
     Active Substance: MITOXANTRONE HYDROCHLORIDE
     Dosage: TREATMENT VISIT 3
     Route: 065
     Dates: start: 20120214, end: 20120216
  11. MITOXANTRONE [Suspect]
     Active Substance: MITOXANTRONE HYDROCHLORIDE
     Dosage: TREATMENT VISIT 5
     Route: 065
     Dates: start: 20120417, end: 20120419
  12. GENOXAL [Suspect]
     Active Substance: CYCLOPHOSPHAMIDE
     Dosage: TREATMENT VISIT 5
     Route: 065
     Dates: start: 20120417, end: 20120419
  13. FLUDARABINE [Suspect]
     Active Substance: FLUDARABINE PHOSPHATE
     Dosage: TREATMENT VISIT 5
     Route: 065
     Dates: start: 20120417, end: 20120419
  14. GENOXAL [Suspect]
     Active Substance: CYCLOPHOSPHAMIDE
     Dosage: TREATMENT VISIT 6
     Route: 065
     Dates: start: 20120529, end: 20120531
  15. MITOXANTRONE [Suspect]
     Active Substance: MITOXANTRONE HYDROCHLORIDE
     Indication: CHRONIC LYMPHOCYTIC LEUKAEMIA
     Dosage: TREATMENT VISIT 1
     Route: 065
     Dates: start: 20111207, end: 20111210
  16. MITOXANTRONE [Suspect]
     Active Substance: MITOXANTRONE HYDROCHLORIDE
     Dosage: TREATMENT VISIT 4
     Route: 065
     Dates: start: 20120320, end: 20120322
  17. RITUXIMAB [Suspect]
     Active Substance: RITUXIMAB
     Dosage: TREATMENT VISIT 2
     Route: 065
     Dates: start: 20120110, end: 20120112
  18. RITUXIMAB [Suspect]
     Active Substance: RITUXIMAB
     Dosage: TREATMENT VISIT 4
     Route: 065
     Dates: start: 20120320, end: 20120322
  19. GENOXAL [Suspect]
     Active Substance: CYCLOPHOSPHAMIDE
     Dosage: TREATMENT VISIT 3
     Route: 065
     Dates: start: 20120214, end: 20120216
  20. GENOXAL [Suspect]
     Active Substance: CYCLOPHOSPHAMIDE
     Dosage: TREATMENT VISIT 4
     Route: 065
     Dates: start: 20120320, end: 20120322
  21. GENOXAL [Suspect]
     Active Substance: CYCLOPHOSPHAMIDE
     Indication: CHRONIC LYMPHOCYTIC LEUKAEMIA
     Dosage: TREATMENT VISIT 1
     Route: 065
     Dates: start: 20111207, end: 20111210
  22. RITUXIMAB [Suspect]
     Active Substance: RITUXIMAB
     Dosage: TREATMENT VISIT 6
     Route: 065
     Dates: start: 20120529, end: 20120531
  23. FLUDARABINE [Suspect]
     Active Substance: FLUDARABINE PHOSPHATE
     Indication: CHRONIC LYMPHOCYTIC LEUKAEMIA
     Dosage: TREATMENT VISIT 1
     Route: 065
     Dates: start: 20111207, end: 20111210
  24. MITOXANTRONE [Suspect]
     Active Substance: MITOXANTRONE HYDROCHLORIDE
     Dosage: TREATMENT VISIT 6
     Route: 065
     Dates: start: 20120529, end: 20120531

REACTIONS (3)
  - Haematotoxicity [Unknown]
  - Neutrophil count decreased [Recovered/Resolved]
  - Febrile neutropenia [Recovered/Resolved]

NARRATIVE: CASE EVENT DATE: 20120430
